FAERS Safety Report 25621897 (Version 2)
Quarter: 2025Q3

REPORT INFORMATION
  Report Type: Spontaneous
  Country: US (occurrence: US)
  Receive Date: 20250730
  Receipt Date: 20250806
  Transmission Date: 20251021
  Serious: Yes (Hospitalization)
  Sender: MYLAN
  Company Number: US-MYLANLABS-2025M1064286

PATIENT
  Age: 32 Year
  Sex: Male

DRUGS (2)
  1. CLOZAPINE [Suspect]
     Active Substance: CLOZAPINE
     Indication: Schizophrenia
  2. ATIVAN [Concomitant]
     Active Substance: LORAZEPAM
     Indication: Catatonia

REACTIONS (5)
  - Obsessive-compulsive disorder [Recovering/Resolving]
  - Selective eating disorder [Recovering/Resolving]
  - Malnutrition [Recovering/Resolving]
  - Delirium [Recovering/Resolving]
  - Psychotic disorder [Recovering/Resolving]
